FAERS Safety Report 20504808 (Version 1)
Quarter: 2022Q1

REPORT INFORMATION
  Report Type: Spontaneous
  Country: US (occurrence: US)
  Receive Date: 20220223
  Receipt Date: 20220223
  Transmission Date: 20220423
  Serious: Yes (Other)
  Sender: FDA-Public Use
  Company Number: US-JNJFOC-20220237308

PATIENT

DRUGS (1)
  1. FAMOTIDINE [Suspect]
     Active Substance: FAMOTIDINE
     Indication: COVID-19
     Dosage: THREE TIMES A DAY FOR 14 CONSECUTIVE DAYS
     Route: 048

REACTIONS (9)
  - Neutropenia [Recovered/Resolved]
  - Off label use [Unknown]
  - Product use in unapproved indication [Recovered/Resolved]
  - Overdose [Unknown]
  - Hepatic enzyme increased [Unknown]
  - Therapeutic response unexpected [Unknown]
  - Nausea [Recovered/Resolved]
  - Vomiting [Recovered/Resolved]
  - Treatment noncompliance [Unknown]
